FAERS Safety Report 11345001 (Version 1)
Quarter: 2015Q3

REPORT INFORMATION
  Report Type: Spontaneous
  Country: US (occurrence: None)
  Receive Date: 20150805
  Receipt Date: 20150805
  Transmission Date: 20151125
  Serious: Yes (Hospitalization)
  Sender: FDA-Public Use
  Company Number: None

PATIENT
  Age: 77 Year
  Sex: Male
  Weight: 99.6 kg

DRUGS (2)
  1. WARFARIN [Suspect]
     Active Substance: WARFARIN
     Indication: ATRIAL FIBRILLATION
     Dates: start: 19990101, end: 20150620
  2. WARFARIN [Suspect]
     Active Substance: WARFARIN
     Indication: PULMONARY EMBOLISM
     Dates: start: 19990101, end: 20150620

REACTIONS (8)
  - Cystitis radiation [None]
  - Intracardiac thrombus [None]
  - Pulmonary embolism [None]
  - International normalised ratio increased [None]
  - Haematuria [None]
  - Respiratory failure [None]
  - Urinary retention [None]
  - Acute kidney injury [None]

NARRATIVE: CASE EVENT DATE: 20150619
